FAERS Safety Report 9319776 (Version 3)
Quarter: 2013Q3

REPORT INFORMATION
  Report Type: Spontaneous
  Country: JP (occurrence: JP)
  Receive Date: 20130530
  Receipt Date: 20130701
  Transmission Date: 20140515
  Serious: Yes (Other)
  Sender: FDA-Public Use
  Company Number: JP-GLAXOSMITHKLINE-B0894264A

PATIENT
  Age: 61 Year
  Sex: Male

DRUGS (5)
  1. AVOLVE [Suspect]
     Indication: BENIGN PROSTATIC HYPERPLASIA
     Dosage: .5MG PER DAY
     Route: 048
     Dates: start: 20101126, end: 20110304
  2. AVOLVE [Suspect]
     Indication: BENIGN PROSTATIC HYPERPLASIA
     Dosage: .5MG PER DAY
     Route: 048
     Dates: start: 20130115
  3. HARNAL [Concomitant]
     Indication: BENIGN PROSTATIC HYPERPLASIA
     Dosage: .2MG PER DAY
     Route: 048
     Dates: start: 20010417
  4. PROSTAL [Concomitant]
     Route: 048
     Dates: start: 20010417, end: 201011
  5. PROSTAL [Concomitant]
     Route: 048
     Dates: start: 20110304, end: 20130115

REACTIONS (4)
  - Urinary retention [Unknown]
  - Urinary retention [Unknown]
  - Dysgeusia [Recovered/Resolved]
  - Dysgeusia [Not Recovered/Not Resolved]
